FAERS Safety Report 24544994 (Version 2)
Quarter: 2025Q4

REPORT INFORMATION
  Report Type: Spontaneous
  Country: EU (occurrence: EU)
  Receive Date: 20241024
  Receipt Date: 20251013
  Transmission Date: 20260118
  Serious: Yes (Death, Other)
  Sender: GRIFOLS
  Company Number: None

PATIENT
  Age: 51 Year
  Sex: Female
  Weight: 37.1 kg

DRUGS (18)
  1. HUMAN IMMUNOGLOBULIN G [Suspect]
     Active Substance: HUMAN IMMUNOGLOBULIN G
     Indication: Off label use
     Route: 042
  2. HUMAN IMMUNOGLOBULIN G [Suspect]
     Active Substance: HUMAN IMMUNOGLOBULIN G
     Indication: Transplant rejection
  3. ALBUTEIN [Suspect]
     Active Substance: ALBUMIN HUMAN
     Indication: Product used for unknown indication
     Dosage: 50 INTERNATIONAL UNIT
     Dates: start: 20240726
  4. ALBUTEIN [Suspect]
     Active Substance: ALBUMIN HUMAN
     Dosage: 75 INTERNATIONAL UNIT
     Dates: start: 20240724
  5. ALBUTEIN [Suspect]
     Active Substance: ALBUMIN HUMAN
     Dosage: 50 INTERNATIONAL UNIT
     Dates: start: 20240727
  6. ALBUTEIN [Suspect]
     Active Substance: ALBUMIN HUMAN
     Dosage: 75 INTERNATIONAL UNIT
     Dates: start: 20240730
  7. ALBUTEIN [Suspect]
     Active Substance: ALBUMIN HUMAN
     Dosage: 50 INTERNATIONAL UNIT
     Dates: start: 20240731
  8. BERINERT [Suspect]
     Active Substance: HUMAN C1-ESTERASE INHIBITOR
     Indication: Off label use
     Dosage: 1000 INTERNATIONAL UNIT
     Dates: start: 20240502
  9. BERINERT [Suspect]
     Active Substance: HUMAN C1-ESTERASE INHIBITOR
     Indication: Transplant rejection
     Dosage: 20 INTERNATIONAL UNIT/KILOGRAM
     Dates: start: 20240425
  10. BERINERT [Suspect]
     Active Substance: HUMAN C1-ESTERASE INHIBITOR
     Dosage: 500 INTERNATIONAL UNIT
     Dates: start: 20240828
  11. BERINERT [Suspect]
     Active Substance: HUMAN C1-ESTERASE INHIBITOR
     Dosage: 1000 INTERNATIONAL UNIT
     Dates: start: 20240603
  12. PROGRAF [Concomitant]
     Active Substance: TACROLIMUS
     Dosage: 12 MILLIGRAM
     Route: 048
     Dates: start: 20240213, end: 20240915
  13. BELATACEPT [Concomitant]
     Active Substance: BELATACEPT
     Dosage: UNK
     Route: 042
     Dates: start: 20240909, end: 20240909
  14. ALBUMIN HUMAN [Concomitant]
     Active Substance: ALBUMIN HUMAN
     Indication: Plasmapheresis
     Dosage: 25 BATCHES
  15. MYFORTIC [Concomitant]
     Active Substance: MYCOPHENOLATE SODIUM
     Dosage: 1080
     Route: 048
     Dates: start: 20240802, end: 20240915
  16. CERTICAN [Concomitant]
     Active Substance: EVEROLIMUS
     Dosage: 1 MILLIGRAM
     Route: 048
     Dates: end: 20240915
  17. RITUXIMAB [Concomitant]
     Active Substance: RITUXIMAB
     Dosage: UNK
  18. TOLODODEKIN ALFA [Concomitant]
     Active Substance: TOLODODEKIN ALFA
     Indication: Off label use
     Dosage: UNK
     Route: 042
     Dates: start: 20240729, end: 20240729

REACTIONS (5)
  - Transplant dysfunction [Unknown]
  - Cardiogenic shock [Fatal]
  - Transplant rejection [Not Recovered/Not Resolved]
  - Intentional dose omission [Unknown]
  - Urticaria [Recovered/Resolved]

NARRATIVE: CASE EVENT DATE: 20240920
